FAERS Safety Report 18193235 (Version 3)
Quarter: 2020Q3

REPORT INFORMATION
  Report Type: Report from Study
  Country: BR (occurrence: BR)
  Receive Date: 20200825
  Receipt Date: 20200918
  Transmission Date: 20201103
  Serious: Yes (Hospitalization, Other)
  Sender: FDA-Public Use
  Company Number: NVSC2020BR010288

PATIENT
  Age: 50 Year
  Sex: Female

DRUGS (12)
  1. COSENTYX [Suspect]
     Active Substance: SECUKINUMAB
     Dosage: 150 MG, UNKNOWN (1 AMPOULE OF 150 MG, STOPPED 2 MONTHS AGO)
     Route: 065
  2. COSENTYX [Suspect]
     Active Substance: SECUKINUMAB
     Dosage: UNK
     Route: 065
     Dates: start: 20200103
  3. COSENTYX [Suspect]
     Active Substance: SECUKINUMAB
     Dosage: 2 DF (2 PENS OF 300MG), EVERY 28 DAYS
     Route: 065
  4. METHOTREXATE. [Suspect]
     Active Substance: METHOTREXATE
     Indication: PRODUCT USED FOR UNKNOWN INDICATION
     Dosage: UNK
     Route: 065
  5. SALBUTAMOL [Concomitant]
     Active Substance: ALBUTEROL
     Indication: ASTHMA
     Dosage: UNK
     Route: 055
  6. COSENTYX [Suspect]
     Active Substance: SECUKINUMAB
     Indication: PSORIATIC ARTHROPATHY
     Dosage: 1 DF, UNKNOWN (1 PEN)
     Route: 065
     Dates: start: 201908
  7. COSENTYX [Suspect]
     Active Substance: SECUKINUMAB
     Dosage: 300 MG, UNKNOWN (2 AMPOULE OF 300 MG, STARTED 2 MONTHS AGO)
     Route: 065
  8. ISONIASID [Concomitant]
     Active Substance: ISONIAZID
     Indication: PRODUCT USED FOR UNKNOWN INDICATION
     Dosage: UNK
     Route: 065
  9. ALENIA [Concomitant]
     Indication: COUGH
     Dosage: UNK
     Route: 065
  10. COSENTYX [Suspect]
     Active Substance: SECUKINUMAB
     Dosage: UNK  (EVERY 28 DAYS)
     Route: 065
     Dates: start: 201910
  11. COSENTYX [Suspect]
     Active Substance: SECUKINUMAB
     Dosage: UNK
     Route: 065
     Dates: start: 20200813
  12. ALENIA [Concomitant]
     Indication: DYSPNOEA

REACTIONS (33)
  - Inflammation [Not Recovered/Not Resolved]
  - Fatigue [Recovering/Resolving]
  - Psoriatic arthropathy [Unknown]
  - Wound [Recovering/Resolving]
  - Atelectasis [Recovering/Resolving]
  - Erythema [Not Recovered/Not Resolved]
  - Wound complication [Unknown]
  - Arterial stiffness [Unknown]
  - Pruritus [Not Recovered/Not Resolved]
  - Dyspnoea [Recovering/Resolving]
  - Asthma [Recovering/Resolving]
  - Cellulitis [Unknown]
  - Oedema peripheral [Unknown]
  - Skin lesion [Recovering/Resolving]
  - Tendon discomfort [Unknown]
  - Pulmonary fibrosis [Recovering/Resolving]
  - Burning sensation [Not Recovered/Not Resolved]
  - Tendonitis [Recovering/Resolving]
  - Concomitant disease aggravated [Recovering/Resolving]
  - Stress [Unknown]
  - Cough [Recovering/Resolving]
  - Malaise [Unknown]
  - Disease progression [Not Recovered/Not Resolved]
  - Drug ineffective [Unknown]
  - Treatment failure [Unknown]
  - Peripheral swelling [Recovering/Resolving]
  - Guttate psoriasis [Recovering/Resolving]
  - Psoriasis [Recovering/Resolving]
  - Gait disturbance [Recovering/Resolving]
  - Blindness [Not Recovered/Not Resolved]
  - Cardiac disorder [Unknown]
  - Limb injury [Not Recovered/Not Resolved]
  - Therapeutic product effect incomplete [Unknown]

NARRATIVE: CASE EVENT DATE: 20191217
